FAERS Safety Report 8129388-5 (Version None)
Quarter: 2012Q1

REPORT INFORMATION
  Report Type: 
  Country: None (occurrence: None)
  Receive Date: 20120210
  Receipt Date: 20120201
  Transmission Date: 20120608
  Serious: Yes (Hospitalization)
  Sender: FDA-Public Use
  Company Number: FR-JNJFOC-20120202986

PATIENT
  Sex: Male

DRUGS (9)
  1. NOZINAN [Suspect]
     Indication: SCHIZOPHRENIA
     Route: 048
  2. CLONAZEPAM [Concomitant]
     Indication: SCHIZOPHRENIA
     Route: 048
  3. VALPROIC ACID [Concomitant]
     Indication: BIPOLAR DISORDER
     Route: 048
  4. POTASSIUM CHLORIDE [Concomitant]
     Indication: HYPOKALAEMIA
     Route: 048
  5. HALDOL [Suspect]
     Indication: SCHIZOPHRENIA
     Dosage: 60-100-60
     Route: 048
  6. LOVENOX [Concomitant]
     Indication: VENOUS THROMBOSIS
     Route: 058
  7. POLYETHYLENE GLYCOL [Concomitant]
     Indication: CONSTIPATION
     Dosage: 1 TO 2 SACHETS PER DAY
     Route: 048
  8. LEPTICUR [Concomitant]
     Indication: PARKINSONISM
     Route: 048
  9. DEBRIDAT [Concomitant]
     Indication: ABDOMINAL PAIN
     Route: 048

REACTIONS (8)
  - CONSTIPATION [None]
  - HYPERPROLACTINAEMIA [None]
  - VOLVULUS [None]
  - ENTEROCOLITIS INFECTIOUS [None]
  - INFLAMMATION [None]
  - MEGACOLON [None]
  - FUNCTIONAL GASTROINTESTINAL DISORDER [None]
  - ABDOMINAL PAIN [None]
